FAERS Safety Report 20456090 (Version 1)
Quarter: 2022Q1

REPORT INFORMATION
  Report Type: Spontaneous
  Country: US (occurrence: None)
  Receive Date: 20220210
  Receipt Date: 20220210
  Transmission Date: 20220423
  Serious: No
  Sender: FDA-Public Use
  Company Number: None

PATIENT
  Age: 88 Year
  Sex: Male
  Weight: 108 kg

DRUGS (1)
  1. SERTRALINE [Suspect]
     Active Substance: SERTRALINE HYDROCHLORIDE
     Indication: Depression
     Dosage: FREQUENCY : AS DIRECTED;?
     Route: 048
     Dates: start: 20210824, end: 20211016

REACTIONS (3)
  - Dyspepsia [None]
  - Oral discomfort [None]
  - Drug intolerance [None]

NARRATIVE: CASE EVENT DATE: 20211013
